FAERS Safety Report 9165995 (Version 3)
Quarter: 2013Q2

REPORT INFORMATION
  Report Type: Report from Study
  Country: TR (occurrence: TR)
  Receive Date: 20130315
  Receipt Date: 20130404
  Transmission Date: 20140414
  Serious: Yes (Death, Hospitalization, Other)
  Sender: FDA-Public Use
  Company Number: TR-009507513-1303TUR006120

PATIENT
  Age: 61 Year
  Sex: Male
  Weight: 106 kg

DRUGS (3)
  1. DEXAMETHASONE [Suspect]
     Indication: PLASMA CELL MYELOMA
     Dosage: EVERY 21 DAYS, ON DAY 1,2,4,5,8,9,11 AND 12
     Route: 048
     Dates: start: 20121016, end: 20130115
  2. BORTEZOMIB [Suspect]
     Indication: PLASMA CELL MYELOMA
     Dosage: EVERY 21 DAYS ON DAY 1,4,8 AND 11
     Route: 058
     Dates: start: 20121016, end: 20130115
  3. THERAPEUTIC RADIOPHARMACEUTICAL (UNSPECIFIED) [Concomitant]
     Dosage: UNK
     Dates: start: 20130129, end: 20130204

REACTIONS (5)
  - Pneumonia [Fatal]
  - Multi-organ failure [Fatal]
  - Sepsis [Fatal]
  - Hypotension [Fatal]
  - Febrile neutropenia [Fatal]
